FAERS Safety Report 16097968 (Version 14)
Quarter: 2023Q1

REPORT INFORMATION
  Report Type: Report from Study
  Country: CA (occurrence: CA)
  Receive Date: 20190320
  Receipt Date: 20230314
  Transmission Date: 20230418
  Serious: Yes (Hospitalization, Other)
  Sender: FDA-Public Use
  Company Number: PHHY2018CA026946

PATIENT
  Age: 74 Year
  Sex: Female

DRUGS (16)
  1. SANDOSTATIN LAR DEPOT [Suspect]
     Active Substance: OCTREOTIDE ACETATE
     Indication: Carcinoid tumour
     Dosage: 30 MG, QMO (EVERY 4 WEEKS)
     Route: 030
     Dates: start: 20180213
  2. SANDOSTATIN LAR DEPOT [Suspect]
     Active Substance: OCTREOTIDE ACETATE
     Dosage: 40 MG, QMO (4 WEEKS) (VIAL)
     Route: 030
     Dates: start: 20180213
  3. SANDOSTATIN LAR DEPOT [Suspect]
     Active Substance: OCTREOTIDE ACETATE
     Dosage: UNK
     Route: 030
     Dates: start: 20181023
  4. SANDOSTATIN LAR DEPOT [Suspect]
     Active Substance: OCTREOTIDE ACETATE
     Dosage: 30 MG, QMO (EVERY 4 WEEKS)
     Route: 030
     Dates: start: 20190212
  5. SANDOSTATIN LAR DEPOT [Suspect]
     Active Substance: OCTREOTIDE ACETATE
     Dosage: 60 MG, Q4W
     Route: 030
     Dates: start: 20221012
  6. SANDOSTATIN LAR DEPOT [Suspect]
     Active Substance: OCTREOTIDE ACETATE
     Dosage: UNK
     Route: 065
     Dates: start: 20221018
  7. SANDOSTATIN LAR DEPOT [Suspect]
     Active Substance: OCTREOTIDE ACETATE
     Dosage: UNK
     Route: 065
     Dates: start: 20221115
  8. SANDOSTATIN LAR DEPOT [Suspect]
     Active Substance: OCTREOTIDE ACETATE
     Dosage: UNK
     Route: 065
     Dates: start: 20221220
  9. SANDOSTATIN LAR DEPOT [Suspect]
     Active Substance: OCTREOTIDE ACETATE
     Dosage: 60 MG
     Route: 030
     Dates: start: 20230116
  10. OCTREOTIDE [Suspect]
     Active Substance: OCTREOTIDE
     Indication: Carcinoid tumour
     Dosage: UNK, BID
     Route: 058
     Dates: start: 20180129, end: 20180206
  11. OCTREOTIDE [Suspect]
     Active Substance: OCTREOTIDE
  12. OCTREOTIDE [Suspect]
     Active Substance: OCTREOTIDE
  13. CALCIUM CARBONATE [Concomitant]
     Active Substance: CALCIUM CARBONATE
     Indication: Product used for unknown indication
     Dosage: UNK UNK, BID
     Route: 048
  14. SYNTHROID [Concomitant]
     Active Substance: LEVOTHYROXINE SODIUM
     Indication: Product used for unknown indication
     Dosage: UNK UNK, QD
     Route: 048
  15. VAGIFEM [Concomitant]
     Active Substance: ESTRADIOL
     Indication: Product used for unknown indication
     Dosage: UNK UNK, Q2W
     Route: 065
  16. VITAMIN D NOS [Concomitant]
     Active Substance: VITAMIN D NOS
     Indication: Product used for unknown indication
     Dosage: UNK UNK, QW
     Route: 048

REACTIONS (24)
  - Vomiting [Unknown]
  - Abdominal pain [Unknown]
  - Cataract [Unknown]
  - Discomfort [Recovered/Resolved]
  - Abdominal pain upper [Recovering/Resolving]
  - Wound [Recovered/Resolved]
  - Pain [Unknown]
  - Oropharyngeal pain [Not Recovered/Not Resolved]
  - Faeces soft [Unknown]
  - Defaecation urgency [Unknown]
  - Gastric disorder [Unknown]
  - Epigastric discomfort [Unknown]
  - SARS-CoV-2 test positive [Unknown]
  - Headache [Recovering/Resolving]
  - Nausea [Unknown]
  - Flatulence [Not Recovered/Not Resolved]
  - Constipation [Unknown]
  - Steatorrhoea [Unknown]
  - Dizziness [Unknown]
  - Diarrhoea [Unknown]
  - Injection site pain [Unknown]
  - Injection site discolouration [Unknown]
  - Injection site haemorrhage [Unknown]
  - Incorrect dose administered [Unknown]

NARRATIVE: CASE EVENT DATE: 20180125
